FAERS Safety Report 7028321-7 (Version None)
Quarter: 2010Q3

REPORT INFORMATION
  Report Type: 
  Country: None (occurrence: None)
  Receive Date: 20100930
  Receipt Date: 20100716
  Transmission Date: 20110219
  Serious: Yes (Hospitalization)
  Sender: FDA-Public Use
  Company Number: 2010004029

PATIENT
  Age: 50 Year
  Sex: Male

DRUGS (9)
  1. ERLOTINIB/PLACEBO (TABLET) [Suspect]
     Indication: PRODUCT USED FOR UNKNOWN INDICATION
     Dosage: (100 MG,QD),ORAL
     Route: 048
     Dates: start: 20100615, end: 20100716
  2. SORAFENIB [Suspect]
     Indication: PRODUCT USED FOR UNKNOWN INDICATION
     Dosage: (400 MG,QD),ORAL
     Route: 048
     Dates: start: 20100615, end: 20100716
  3. INSULIN HUMAN (INSULIN HUMAN) [Concomitant]
  4. TRIAMCINOLONE [Concomitant]
  5. LOPERAMIDE (LOPERAMIDE) [Concomitant]
  6. ENALAPRIL MALEATE [Concomitant]
  7. GLYBURIDE [Concomitant]
  8. ESSENTIAL [Concomitant]
  9. TIMONACIC (TIMONACIC) [Concomitant]

REACTIONS (1)
  - ANAEMIA [None]
